FAERS Safety Report 4580000-1 (Version None)
Quarter: 2005Q1

REPORT INFORMATION
  Report Type: 
  Country: None (occurrence: None)
  Receive Date: 20050210
  Receipt Date: 20050128
  Transmission Date: 20050727
  Serious: Yes (Hospitalization, Other)
  Sender: FDA-Public Use
  Company Number: 2005023626

PATIENT
  Age: 71 Year
  Sex: Female
  Weight: 106.5953 kg

DRUGS (8)
  1. CELEBREX [Suspect]
     Indication: ARTHRITIS
     Dosage: 400 MG (200 MG, 2 IN 1 D)
     Dates: end: 20050105
  2. PRAVASTATIN SODIUM [Concomitant]
  3. CONJUGATED ESTROGENS [Concomitant]
  4. OXYBUTYNIN CHLORIDE [Concomitant]
  5. LEVOTHYROXINE SODIUM [Concomitant]
  6. ACETAMINOPHEN [Concomitant]
  7. RABEPRAZOLE SODIUM [Concomitant]
  8. VALSARTAN (VALSARTAN) [Concomitant]

REACTIONS (5)
  - ATRIAL FIBRILLATION [None]
  - DYSPNOEA [None]
  - FATIGUE [None]
  - INSOMNIA [None]
  - PULMONARY CONGESTION [None]
